FAERS Safety Report 25997466 (Version 1)
Quarter: 2025Q4

REPORT INFORMATION
  Report Type: Report from Study
  Country: CA (occurrence: CA)
  Receive Date: 20251104
  Receipt Date: 20251104
  Transmission Date: 20260118
  Serious: Yes (Other)
  Sender: ABBVIE
  Company Number: CA-ABBVIE-6475043

PATIENT
  Age: 63 Year
  Sex: Female

DRUGS (2)
  1. BOTOX [Suspect]
     Active Substance: ONABOTULINUMTOXINA
     Indication: Migraine
     Dosage: TIME INTERVAL: AS NECESSARY: DOSE: 200 INTERNATIONAL UNIT, FREQUENCY: EVERY 3 MONTH
     Route: 065
     Dates: start: 20230427, end: 20230427
  2. METOCLOPRAMIDE [Concomitant]
     Active Substance: METOCLOPRAMIDE
     Indication: Product used for unknown indication

REACTIONS (6)
  - Hip arthroplasty [Unknown]
  - Hip fracture [Unknown]
  - Femur fracture [Unknown]
  - Rib fracture [Unknown]
  - Accident [Unknown]
  - Fall [Unknown]

NARRATIVE: CASE EVENT DATE: 20250101
